FAERS Safety Report 11101906 (Version 4)
Quarter: 2015Q3

REPORT INFORMATION
  Report Type: Spontaneous
  Country: US (occurrence: US)
  Receive Date: 20150510
  Receipt Date: 20150807
  Transmission Date: 20151125
  Serious: Yes (Other)
  Sender: FDA-Public Use
  Company Number: US-AMGEN-USASP2015043181

PATIENT
  Age: 65 Year
  Sex: Female

DRUGS (3)
  1. ARAVA [Concomitant]
     Active Substance: LEFLUNOMIDE
     Dosage: UNK
  2. ENBREL [Suspect]
     Active Substance: ETANERCEPT
     Indication: RHEUMATOID ARTHRITIS
     Dosage: UNK
     Route: 065
  3. METHOTREXATE [Suspect]
     Active Substance: METHOTREXATE
     Indication: PRODUCT USED FOR UNKNOWN INDICATION
     Dosage: UNK
     Route: 065

REACTIONS (25)
  - Pain in extremity [Unknown]
  - Weight increased [Unknown]
  - Abdominal distension [Unknown]
  - Pain [Unknown]
  - Injection site swelling [Unknown]
  - Grip strength decreased [Unknown]
  - Gastrooesophageal reflux disease [Unknown]
  - Alopecia [Unknown]
  - Deafness [Unknown]
  - Drug hypersensitivity [Unknown]
  - Pneumonia [Unknown]
  - Aphonia [Unknown]
  - Nerve injury [Unknown]
  - Arthralgia [Unknown]
  - Abdominal discomfort [Unknown]
  - Drug ineffective [Unknown]
  - Hand deformity [Unknown]
  - Adverse drug reaction [Unknown]
  - Erythema [Unknown]
  - Injection site erythema [Unknown]
  - Malaise [Unknown]
  - Peripheral swelling [Unknown]
  - Swelling [Unknown]
  - Bronchitis [Unknown]
  - Upper respiratory tract infection [Unknown]
